FAERS Safety Report 4645829-X (Version None)
Quarter: 2005Q2

REPORT INFORMATION
  Report Type: 
  Country: None (occurrence: None)
  Receive Date: 20050422
  Receipt Date: 20050422
  Transmission Date: 20051028
  Serious: Yes (Hospitalization)
  Sender: FDA-Public Use
  Company Number: None

PATIENT
  Age: 77 Year
  Sex: Male
  Weight: 88.5 kg

DRUGS (9)
  1. ENALAPRIL [Suspect]
  2. SYNTHROID [Concomitant]
  3. OMEPRAZOLE [Concomitant]
  4. LORATADINE [Concomitant]
  5. SIMVASTATIN [Concomitant]
  6. ALBUTEROL [Concomitant]
  7. DM 10/GUAIFENESIN 100MG/SML (ALC-F/8F) [Concomitant]
  8. GATIFLOXACIN [Concomitant]
  9. METOPROLOL TARTRATE [Concomitant]

REACTIONS (1)
  - COUGH [None]
